FAERS Safety Report 7901921-5 (Version None)
Quarter: 2011Q4

REPORT INFORMATION
  Report Type: 
  Country: None (occurrence: None)
  Receive Date: 20111108
  Receipt Date: 20111103
  Transmission Date: 20120403
  Serious: Yes (Hospitalization)
  Sender: FDA-Public Use
  Company Number: FR-SANOFI-AVENTIS-2011SA072307

PATIENT
  Age: 67 Year
  Sex: Female

DRUGS (6)
  1. OFLOXACIN [Concomitant]
     Route: 048
     Dates: start: 20110824, end: 20110831
  2. RIFAMPIN [Suspect]
     Route: 042
     Dates: start: 20110824, end: 20110922
  3. XANAX [Suspect]
     Route: 048
     Dates: start: 20110826, end: 20110906
  4. VANCOMYCIN [Suspect]
     Route: 042
     Dates: start: 20110831, end: 20110922
  5. LOVENOX [Suspect]
     Route: 058
     Dates: start: 20110824, end: 20110906
  6. IMOVANE [Suspect]
     Route: 048
     Dates: start: 20110826, end: 20110906

REACTIONS (6)
  - DERMATITIS EXFOLIATIVE [None]
  - GAMMA-GLUTAMYLTRANSFERASE INCREASED [None]
  - RENAL IMPAIRMENT [None]
  - LYMPHOPENIA [None]
  - PYREXIA [None]
  - DRUG RASH WITH EOSINOPHILIA AND SYSTEMIC SYMPTOMS [None]
